FAERS Safety Report 16788212 (Version 1)
Quarter: 2019Q3

REPORT INFORMATION
  Report Type: Spontaneous
  Country: CN (occurrence: CN)
  Receive Date: 20190909
  Receipt Date: 20190909
  Transmission Date: 20191005
  Serious: Yes (Other)
  Sender: FDA-Public Use
  Company Number: CN-BAXTER-2019BAX017504

PATIENT
  Age: 3 Year
  Sex: Female
  Weight: 12.7 kg

DRUGS (7)
  1. OUBEI [Suspect]
     Active Substance: ONDANSETRON HYDROCHLORIDE
     Indication: ACUTE LYMPHOCYTIC LEUKAEMIA
     Dosage: CAT REGIMEN
     Route: 040
     Dates: start: 20190806, end: 20190809
  2. ENDOXAN [Suspect]
     Active Substance: CYCLOPHOSPHAMIDE
     Indication: ACUTE LYMPHOCYTIC LEUKAEMIA
     Dosage: CAT REGIMEN. ENDOXAN + GLUCOSE AND SODIUM CHLORIDE (4:1) 250 ML
     Route: 041
     Dates: start: 20190806, end: 20190806
  3. 5% GLUCOSE AND 0.9% SODIUM CHLORIDE INJECTION [Suspect]
     Active Substance: DEXTROSE\SODIUM CHLORIDE
     Indication: MEDICATION DILUTION
     Dosage: CAT REGIMEN. ENDOXAN 0.57 GRAMS + GLUCOSE AND SODIUM CHLORIDE (4:1)
     Route: 041
     Dates: start: 20190806, end: 20190806
  4. 5% GLUCOSE AND 0.9% SODIUM CHLORIDE INJECTION [Suspect]
     Active Substance: DEXTROSE\SODIUM CHLORIDE
     Dosage: CAT REGIMEN. CYTARABINE 0.5 GRAMS + GLUCOSE AND SODIUM CHLORIDE (4:1)
     Route: 041
     Dates: start: 20190806, end: 20190809
  5. CYTARABINE. [Suspect]
     Active Substance: CYTARABINE
     Indication: ACUTE LYMPHOCYTIC LEUKAEMIA
     Dosage: CAT REGIMEN. CYTARABINE + GLUCOSE AND SODIUM CHLORIDE (4:1) 250 ML
     Route: 041
     Dates: start: 20190806, end: 20190809
  6. MERCAPTOPURINE. [Suspect]
     Active Substance: MERCAPTOPURINE
     Indication: ACUTE LYMPHOCYTIC LEUKAEMIA
     Dosage: CAT REGIMEN. DOSAGE FORM: TABLET
     Route: 048
     Dates: start: 20190806, end: 20190813
  7. RECOMBINANT HUMAN GRANULOCYTE COLONY-STIMULATING FACTOR [Concomitant]
     Indication: PRODUCT USED FOR UNKNOWN INDICATION
     Route: 058
     Dates: start: 20190813, end: 20190815

REACTIONS (1)
  - Bone marrow failure [Recovering/Resolving]

NARRATIVE: CASE EVENT DATE: 20190816
